FAERS Safety Report 23471760 (Version 2)
Quarter: 2024Q1

REPORT INFORMATION
  Report Type: Report from Study
  Country: US (occurrence: None)
  Receive Date: 20240202
  Receipt Date: 20240320
  Transmission Date: 20240410
  Serious: Yes (Hospitalization)
  Sender: FDA-Public Use
  Company Number: 2024A021828

PATIENT
  Sex: Female

DRUGS (3)
  1. FASENRA [Suspect]
     Active Substance: BENRALIZUMAB
     Indication: Asthma
     Route: 058
  2. PREDNISONE [Concomitant]
     Active Substance: PREDNISONE
  3. AZITHROMYCIN [Concomitant]
     Active Substance: AZITHROMYCIN

REACTIONS (4)
  - Illness [Unknown]
  - Pneumonia bacterial [Unknown]
  - Asthma [Unknown]
  - Decreased activity [Unknown]
